FAERS Safety Report 10455930 (Version 1)
Quarter: 2014Q3

REPORT INFORMATION
  Report Type: Spontaneous
  Country: US (occurrence: None)
  Receive Date: 20140915
  Receipt Date: 20140915
  Transmission Date: 20150326
  Serious: Yes (Hospitalization)
  Sender: FDA-Public Use
  Company Number: None

PATIENT
  Age: 51 Year
  Sex: Female
  Weight: 79.4 kg

DRUGS (8)
  1. TYSABRI [Concomitant]
     Active Substance: NATALIZUMAB
  2. PREDNISONE. [Concomitant]
     Active Substance: PREDNISONE
  3. LEXISCAN [Suspect]
     Active Substance: REGADENOSON
     Indication: NUCLEAR MAGNETIC RESONANCE IMAGING
     Route: 042
     Dates: start: 20140829
  4. LEXISCAN [Suspect]
     Active Substance: REGADENOSON
     Indication: CARDIAC STRESS TEST
     Route: 042
     Dates: start: 20140829
  5. TOPIRAMATE. [Concomitant]
     Active Substance: TOPIRAMATE
  6. CARBAMAZEPINE. [Concomitant]
     Active Substance: CARBAMAZEPINE
  7. FLUOXETINE [Concomitant]
     Active Substance: FLUOXETINE\FLUOXETINE HYDROCHLORIDE
  8. LEVOTHYROXINE [Concomitant]
     Active Substance: LEVOTHYROXINE

REACTIONS (5)
  - Hemiparesis [None]
  - Migraine [None]
  - Hypoaesthesia [None]
  - Chest pain [None]
  - Somatisation disorder [None]

NARRATIVE: CASE EVENT DATE: 20140829
